FAERS Safety Report 17810710 (Version 1)
Quarter: 2020Q2

REPORT INFORMATION
  Report Type: Spontaneous
  Country: US (occurrence: US)
  Receive Date: 20200520
  Receipt Date: 20200520
  Transmission Date: 20200714
  Serious: Yes (Hospitalization)
  Sender: FDA-Public Use
  Company Number: None

PATIENT
  Sex: Male

DRUGS (16)
  1. REPATHA [Suspect]
     Active Substance: EVOLOCUMAB
     Indication: PRODUCT USED FOR UNKNOWN INDICATION
     Dosage: OTHER FREQUENCY:EVERY 14 DAYS;?
     Route: 058
     Dates: start: 20190822
  2. BASAGLAR [Concomitant]
     Active Substance: INSULIN GLARGINE
  3. PANTOPRAZOLE [Concomitant]
     Active Substance: PANTOPRAZOLE
  4. ENTRESTO [Concomitant]
     Active Substance: SACUBITRIL\VALSARTAN
  5. TRULICITY [Concomitant]
     Active Substance: DULAGLUTIDE
  6. CLOPIDOGREL [Concomitant]
     Active Substance: CLOPIDOGREL BISULFATE
  7. FUROSEMIDE. [Concomitant]
     Active Substance: FUROSEMIDE
  8. ISOSORB MONO [Concomitant]
     Active Substance: ISOSORBIDE MONONITRATE
  9. CORLANOR [Concomitant]
     Active Substance: IVABRADINE HYDROCHLORIDE
  10. DOXYCYC MONO [Concomitant]
     Active Substance: DOXYCYCLINE
  11. NOVOLOG [Concomitant]
     Active Substance: INSULIN ASPART
  12. JARDIANCE [Concomitant]
     Active Substance: EMPAGLIFLOZIN
  13. CARVEDILOL. [Concomitant]
     Active Substance: CARVEDILOL
  14. ELIQUIS [Concomitant]
     Active Substance: APIXABAN
  15. POT CL MICRO [Concomitant]
  16. VASCEPA [Concomitant]
     Active Substance: ICOSAPENT ETHYL

REACTIONS (1)
  - Infection [None]
